FAERS Safety Report 5143371-3 (Version None)
Quarter: 2006Q4

REPORT INFORMATION
  Report Type: 
  Country: None (occurrence: None)
  Receive Date: 20061030
  Receipt Date: 20061017
  Transmission Date: 20070319
  Serious: Yes (Other)
  Sender: FDA-Public Use
  Company Number: 2006127498

PATIENT
  Age: 63 Year
  Sex: Female

DRUGS (5)
  1. CLINDAMYCIN PHOSPHATE [Suspect]
     Dosage: 1200 MG (600 MG, 2 IN 1 D), INTRAVENOUS
     Route: 042
     Dates: start: 20061016
  2. PIPERACILLIN SODIUM [Concomitant]
  3. TRANSAMIN (TRANEXAMIC ACID) [Concomitant]
  4. LOXONIN (LOXOPROFEN SODIUM) [Concomitant]
  5. FERROMIA (FERROUS CITRATE) [Concomitant]

REACTIONS (1)
  - LOSS OF CONSCIOUSNESS [None]
